FAERS Safety Report 8344775-8 (Version None)
Quarter: 2012Q2

REPORT INFORMATION
  Report Type: 
  Country: None (occurrence: None)
  Receive Date: 20120508
  Receipt Date: 20120430
  Transmission Date: 20120825
  Serious: Yes (Other)
  Sender: FDA-Public Use
  Company Number: AT-BAYER-2012-042336

PATIENT
  Age: 22 Year
  Sex: Female

DRUGS (5)
  1. ESTRADIOL VALERATE/DIENOGEST [Suspect]
     Indication: CONTRACEPTION
     Dosage: UNK
     Dates: start: 20110901, end: 20111027
  2. PARKEMED [Concomitant]
     Indication: HEADACHE
     Dosage: UNK
     Dates: start: 20110901
  3. ACETYLSALICYLIC ACID/PARACETAMOL [Concomitant]
     Indication: HEADACHE
     Dosage: UNK
     Dates: start: 20110901
  4. MEXALEN [Concomitant]
     Indication: HEADACHE
     Dosage: UNK
     Dates: start: 20110901
  5. CEFIXIME [Concomitant]
     Indication: URINARY TRACT INFECTION
     Dosage: UNK
     Dates: start: 20111024, end: 20111027

REACTIONS (2)
  - AUTOIMMUNE HEPATITIS [None]
  - DRUG-INDUCED LIVER INJURY [None]
